FAERS Safety Report 8543336-5 (Version None)
Quarter: 2012Q3

REPORT INFORMATION
  Report Type: 
  Country: None (occurrence: None)
  Receive Date: 20120727
  Receipt Date: 20120719
  Transmission Date: 20120928
  Serious: Yes (Hospitalization, Other)
  Sender: FDA-Public Use
  Company Number: US-US-EMD SERONO, INC.-7032238

PATIENT
  Sex: Male
  Weight: 86 kg

DRUGS (8)
  1. TOPAMAX [Concomitant]
     Indication: MULTIPLE SCLEROSIS
  2. REBIF [Suspect]
     Indication: MULTIPLE SCLEROSIS
     Route: 058
     Dates: start: 20100801
  3. UNSPECIFIED MEDICATIONS [Concomitant]
     Indication: PRODUCT USED FOR UNKNOWN INDICATION
  4. LYRICA [Concomitant]
     Indication: PAIN
  5. ENABLEX [Concomitant]
     Indication: BLADDER DISORDER
  6. TOPAMAX [Concomitant]
     Indication: CONVULSION
     Dates: start: 20080101
  7. TOPAMAX [Concomitant]
     Indication: PAIN
  8. BLOOD THINNERS [Concomitant]
     Indication: PRODUCT USED FOR UNKNOWN INDICATION

REACTIONS (8)
  - PULMONARY EMBOLISM [None]
  - CONVERSION DISORDER [None]
  - SEPSIS [None]
  - BIPOLAR DISORDER [None]
  - ARTHRITIS INFECTIVE [None]
  - POST-TRAUMATIC STRESS DISORDER [None]
  - TREMOR [None]
  - GRAND MAL CONVULSION [None]
